FAERS Safety Report 19001747 (Version 1)
Quarter: 2021Q1

REPORT INFORMATION
  Report Type: Spontaneous
  Country: US (occurrence: US)
  Receive Date: 20210312
  Receipt Date: 20210312
  Transmission Date: 20210420
  Serious: No
  Sender: FDA-Public Use
  Company Number: US-FARMAPROD-202012-1644

PATIENT
  Sex: Female

DRUGS (3)
  1. REFRESH [Concomitant]
     Active Substance: UNSPECIFIED INGREDIENT
  2. GENTEAL MILD [Concomitant]
     Active Substance: HYPROMELLOSE 2910 (4000 MPA.S)
  3. OXERVATE [Suspect]
     Active Substance: CENEGERMIN-BKBJ
     Indication: NEUROTROPHIC KERATOPATHY
     Route: 047
     Dates: start: 20201028

REACTIONS (2)
  - Therapy interrupted [Not Recovered/Not Resolved]
  - Ocular hyperaemia [Not Recovered/Not Resolved]
